FAERS Safety Report 9989150 (Version 2)
Quarter: 2014Q1

REPORT INFORMATION
  Report Type: Report from Study
  Country: PT (occurrence: PT)
  Receive Date: 20140310
  Receipt Date: 20140326
  Transmission Date: 20141002
  Serious: Yes (Hospitalization)
  Sender: FDA-Public Use
  Company Number: PT-BAYER-2014-031238

PATIENT
  Age: 32 Year
  Sex: Male

DRUGS (1)
  1. BETAFERON [Suspect]
     Indication: RELAPSING-REMITTING MULTIPLE SCLEROSIS
     Dosage: 250 MCG/ML, QOD
     Route: 058
     Dates: start: 20100129

REACTIONS (4)
  - Abdominal wall abscess [Recovering/Resolving]
  - Abdominal pain [Recovering/Resolving]
  - Cellulitis [Recovering/Resolving]
  - Abdominal pain [Recovering/Resolving]
